FAERS Safety Report 9518811 (Version 1)
Quarter: 2013Q3

REPORT INFORMATION
  Report Type: Spontaneous
  Country: US (occurrence: None)
  Receive Date: 20130910
  Receipt Date: 20130910
  Transmission Date: 20140515
  Serious: Yes (Other)
  Sender: FDA-Public Use
  Company Number: 2013080209

PATIENT
  Age: 50 Year
  Sex: Female

DRUGS (4)
  1. SOMA [Suspect]
     Dates: end: 2007
  2. OPANA ER [Suspect]
     Dates: start: 2007, end: 2011
  3. OXYCODONE HCL [Suspect]
  4. OXYCONTIN (OXYCODONE HYDROCHLORIDE) [Suspect]
     Dates: start: 2007, end: 2011

REACTIONS (3)
  - Drug dependence [None]
  - Overdose [None]
  - Respiratory failure [None]
